FAERS Safety Report 9861871 (Version 1)
Quarter: 2014Q1

REPORT INFORMATION
  Report Type: Spontaneous
  Country: AR (occurrence: UY)
  Receive Date: 20140203
  Receipt Date: 20140203
  Transmission Date: 20141002
  Serious: Yes (Death)
  Sender: FDA-Public Use
  Company Number: UY-BRISTOL-MYERS SQUIBB COMPANY-20079430

PATIENT
  Age: 35 Year
  Sex: Female

DRUGS (1)
  1. IXEMPRA [Suspect]
     Indication: BREAST CANCER
     Dates: start: 201312, end: 201401

REACTIONS (1)
  - Death [Fatal]
